FAERS Safety Report 9220218 (Version 2)
Quarter: 2013Q2

REPORT INFORMATION
  Report Type: Report from Study
  Country: JP (occurrence: JP)
  Receive Date: 20130409
  Receipt Date: 20130624
  Transmission Date: 20140414
  Serious: Yes (Other)
  Sender: FDA-Public Use
  Company Number: JP-PFIZER INC-2013051434

PATIENT
  Age: 5 Year
  Sex: Female
  Weight: 9 kg

DRUGS (7)
  1. SILDENAFIL CITRATE [Suspect]
     Indication: PULMONARY ARTERIAL HYPERTENSION
     Dosage: 5 MG, 3X/DAY
     Route: 048
     Dates: start: 20100818, end: 20101017
  2. SILDENAFIL CITRATE [Suspect]
     Dosage: 10 MG, 3X/DAY
     Route: 048
     Dates: start: 20101018
  3. TRACLEER [Concomitant]
     Indication: PULMONARY HYPERTENSION
     Dosage: UNK
     Route: 048
     Dates: start: 20100818
  4. LUPRAC [Concomitant]
     Indication: CARDIAC FAILURE
     Dosage: UNK
     Route: 048
  5. ALDACTONE-A [Concomitant]
     Indication: CARDIAC FAILURE
     Dosage: UNK
     Route: 048
  6. ASPIRIN [Concomitant]
     Indication: ANTIPLATELET THERAPY
     Dosage: UNK
     Route: 048
  7. WARFARIN [Concomitant]
     Indication: ANTICOAGULANT THERAPY
     Dosage: UNK
     Route: 048

REACTIONS (1)
  - Pulmonary arteriovenous fistula [Recovering/Resolving]
